FAERS Safety Report 8814344 (Version 2)
Quarter: 2012Q4

REPORT INFORMATION
  Report Type: Report from Study
  Country: US (occurrence: US)
  Receive Date: 20120928
  Receipt Date: 20121029
  Transmission Date: 20130627
  Serious: Yes (Death)
  Sender: FDA-Public Use
  Company Number: US-PURDUE-USA-2012-0093620

PATIENT
  Age: 58 Year
  Sex: Male

DRUGS (1)
  1. OXYCONTIN (NDA 22-272) [Suspect]
     Indication: PAIN
     Dosage: 20 mg, q12h
     Dates: start: 20120718

REACTIONS (3)
  - Pancreatic carcinoma stage IV [Fatal]
  - Cardiac disorder [Fatal]
  - Hepatic cancer stage IV [Fatal]
